FAERS Safety Report 16623515 (Version 14)
Quarter: 2020Q2

REPORT INFORMATION
  Report Type: Spontaneous
  Country: CA (occurrence: CA)
  Receive Date: 20190724
  Receipt Date: 20200512
  Transmission Date: 20200713
  Serious: Yes (Other)
  Sender: FDA-Public Use
  Company Number: CA-CELLTRION INC.-2019CA020765

PATIENT

DRUGS (17)
  1. INFLECTRA [Suspect]
     Active Substance: INFLIXIMAB-DYYB
     Dosage: 5 MG/KG, EVERY 0, 2, 6 WEEKS THEN EVERY 8 WEEKS (ROUND UP)
     Route: 042
     Dates: start: 20190521, end: 20190521
  2. INFLECTRA [Suspect]
     Active Substance: INFLIXIMAB-DYYB
     Dosage: 5 MG/KG, Q (EVERY) 0,2,6 WEEKS, THEN EVERY 8 WEEKS (ROUND UP)
     Route: 042
     Dates: start: 20190910
  3. PREMARIN [Concomitant]
     Active Substance: ESTROGENS, CONJUGATED
     Dosage: UNK
     Route: 065
  4. INFLECTRA [Suspect]
     Active Substance: INFLIXIMAB-DYYB
     Dosage: 5 MG/KG, EVERY 0, 2, 6 WEEKS THEN EVERY 8 WEEKS (ROUND UP)
     Route: 042
     Dates: start: 20190423, end: 20190423
  5. INFLECTRA [Suspect]
     Active Substance: INFLIXIMAB-DYYB
     Dosage: 5 MG/KG, Q (EVERY) 0,2,6 WEEKS, THEN EVERY 8 WEEKS (ROUND UP)
     Route: 042
     Dates: start: 20200116, end: 20200116
  6. OXYNEO [Concomitant]
     Active Substance: OXYCODONE
     Dosage: 4 MG, UP TO 3 TIMES A DAY
     Route: 065
  7. PROLIA [Concomitant]
     Active Substance: DENOSUMAB
     Dosage: 60 MG, CYCLIC (EVERY 6 MOTHS)
     Route: 058
  8. QUETIAPINE. [Concomitant]
     Active Substance: QUETIAPINE
     Dosage: 50 MG, 1X/DAY (BED TIME)
     Route: 065
  9. CLONAZEPAM. [Concomitant]
     Active Substance: CLONAZEPAM
     Dosage: 1 MG, 3X/DAY
     Route: 065
  10. INFLECTRA [Suspect]
     Active Substance: INFLIXIMAB-DYYB
     Dosage: 5 MG/KG, Q (EVERY) 0,2,6 WEEKS, THEN EVERY 8 WEEKS (ROUND UP)
     Route: 042
     Dates: start: 20191118
  11. SUPEUDOL [Concomitant]
     Active Substance: OXYCODONE HYDROCHLORIDE
     Dosage: 10 MG, UP TO 4 TIMES A DAY
     Route: 065
  12. TECTA [Concomitant]
     Active Substance: PANTOPRAZOLE MAGNESIUM
     Dosage: 40 MG, 2X/DAY
     Route: 065
  13. INFLECTRA [Suspect]
     Active Substance: INFLIXIMAB-DYYB
     Dosage: 5 MG/KG, EVERY 0, 2, 6 WEEKS THEN EVERY 8 WEEKS (ROUND UP)
     Route: 042
     Dates: start: 20190716
  14. PREDNISONE. [Concomitant]
     Active Substance: PREDNISONE
     Dosage: 8 DF, WEANING DOSE FOR 2 WEEKS
     Dates: end: 201904
  15. INFLECTRA [Suspect]
     Active Substance: INFLIXIMAB-DYYB
     Indication: CROHN^S DISEASE
     Dosage: 5 MG/KG, EVERY 0, 2, 6 WEEKS THEN EVERY 8 WEEKS (ROUND UP)
     Route: 042
     Dates: start: 20190409, end: 20190409
  16. ZOFRAN [Concomitant]
     Active Substance: ONDANSETRON HYDROCHLORIDE
     Dosage: 8 MG, 3-4 TIMES DAILY
     Route: 065
  17. ZOPICLONE [Concomitant]
     Active Substance: ZOPICLONE
     Dosage: 14.5 MG, 1X/DAY (AT NIGHT)
     Route: 065

REACTIONS (36)
  - Condition aggravated [Not Recovered/Not Resolved]
  - Dehydration [Unknown]
  - Abdominal pain [Not Recovered/Not Resolved]
  - Urinary tract infection [Unknown]
  - Weight decreased [Unknown]
  - Stomatitis [Recovered/Resolved]
  - Nasal discomfort [Unknown]
  - Dysphagia [Unknown]
  - Rash [Unknown]
  - Limb injury [Unknown]
  - Infection [Unknown]
  - Blood potassium decreased [Unknown]
  - Nausea [Recovered/Resolved]
  - Influenza like illness [Recovered/Resolved]
  - Malaise [Unknown]
  - Herpes zoster [Unknown]
  - Fatigue [Unknown]
  - Nervousness [Unknown]
  - Pyrexia [Unknown]
  - Arthralgia [Unknown]
  - Therapeutic response shortened [Not Recovered/Not Resolved]
  - Vomiting [Not Recovered/Not Resolved]
  - Heart rate increased [Unknown]
  - Chest pain [Unknown]
  - Diarrhoea [Unknown]
  - Bronchitis [Unknown]
  - Nausea [Not Recovered/Not Resolved]
  - Vision blurred [Unknown]
  - Pain in extremity [Unknown]
  - Pain [Unknown]
  - Hypoaesthesia [Unknown]
  - Drug ineffective [Unknown]
  - Insomnia [Unknown]
  - Back pain [Recovering/Resolving]
  - Contusion [Unknown]
  - Inappropriate schedule of product administration [Unknown]

NARRATIVE: CASE EVENT DATE: 20190409
